FAERS Safety Report 22320358 (Version 2)
Quarter: 2023Q2

REPORT INFORMATION
  Report Type: Spontaneous
  Country: US (occurrence: US)
  Receive Date: 20230515
  Receipt Date: 20230519
  Transmission Date: 20230721
  Serious: Yes (Hospitalization)
  Sender: FDA-Public Use
  Company Number: US-RIGEL Pharmaceuticals, INC-2023OLU000022

PATIENT
  Sex: Male
  Weight: 79.488 kg

DRUGS (2)
  1. REZLIDHIA [Suspect]
     Active Substance: OLUTASIDENIB
     Indication: Acute myeloid leukaemia
     Dosage: 150 MG, BID
     Route: 048
     Dates: start: 20230418
  2. REZLIDHIA [Suspect]
     Active Substance: OLUTASIDENIB
     Dosage: 150 MG, BID
     Route: 048
     Dates: start: 2023

REACTIONS (16)
  - Transfusion [Unknown]
  - Chest discomfort [Unknown]
  - Dyspnoea [Unknown]
  - Somnolence [Unknown]
  - Hypoaesthesia [Unknown]
  - Gastrooesophageal reflux disease [Unknown]
  - Nervousness [Unknown]
  - Spinal osteoarthritis [Unknown]
  - Insomnia [Unknown]
  - Platelet count [Unknown]
  - Haemoglobin [Unknown]
  - Unevaluable event [Unknown]
  - Nausea [Unknown]
  - Pain in extremity [Unknown]
  - Constipation [Unknown]
  - Back pain [Unknown]

NARRATIVE: CASE EVENT DATE: 20230101
